FAERS Safety Report 8619340-5 (Version None)
Quarter: 2012Q3

REPORT INFORMATION
  Report Type: 
  Country: None (occurrence: None)
  Receive Date: 20120824
  Receipt Date: 20120820
  Transmission Date: 20120928
  Serious: Yes (Hospitalization)
  Sender: FDA-Public Use
  Company Number: DE-PFIZER INC-2012204825

PATIENT
  Sex: Male
  Weight: 97.2 kg

DRUGS (5)
  1. TESTOSTERONE UNDECANOATE [Concomitant]
     Indication: HYPOGONADISM MALE
  2. TESTOSTERONE UNDECANOATE [Concomitant]
     Indication: BLOOD LUTEINISING HORMONE DECREASED
     Dosage: UNK
     Dates: start: 20050726
  3. TESTOSTERONE UNDECANOATE [Concomitant]
     Indication: BLOOD FOLLICLE STIMULATING HORMONE DECREASED
  4. ALLOPURINOL [Concomitant]
     Indication: HYPERURICAEMIA
     Dosage: UNK
     Dates: start: 19930515
  5. GENOTROPIN [Suspect]
     Dosage: 0.2 MG, 7/WK
     Route: 058
     Dates: start: 20031106

REACTIONS (1)
  - ARTHROPATHY [None]
